FAERS Safety Report 6160331-4 (Version None)
Quarter: 2009Q2

REPORT INFORMATION
  Report Type: 
  Country: None (occurrence: None)
  Receive Date: 20090415
  Receipt Date: 20090415
  Transmission Date: 20091009
  Serious: Yes (Other)
  Sender: FDA-Public Use
  Company Number: None

PATIENT
  Age: 35 Year
  Sex: Female
  Weight: 70.3075 kg

DRUGS (1)
  1. NUVARING [Suspect]
     Indication: CONTRACEPTION
     Dosage: 1 RING 3 WEEKS VAG
     Route: 067
     Dates: start: 20081002, end: 20090331

REACTIONS (5)
  - ARTHRALGIA [None]
  - COUGH [None]
  - GAIT DISTURBANCE [None]
  - HYPERTENSION [None]
  - JOINT SWELLING [None]
